FAERS Safety Report 7581625-1 (Version None)
Quarter: 2011Q2

REPORT INFORMATION
  Report Type: 
  Country: None (occurrence: None)
  Receive Date: 20110629
  Receipt Date: 20081223
  Transmission Date: 20111010
  Serious: Yes (Hospitalization, Other)
  Sender: FDA-Public Use
  Company Number: US-BAYER-200839926NA

PATIENT
  Age: 43 Year
  Sex: Female
  Weight: 84 kg

DRUGS (26)
  1. MAGNEVIST [Suspect]
     Indication: NUCLEAR MAGNETIC RESONANCE IMAGING
     Dates: start: 19960312, end: 19960312
  2. GADOLINIUM IN UNSPECIFIED DRUG [Suspect]
  3. NEXIUM [Concomitant]
  4. DIOVAN [Concomitant]
  5. TEMAZEPAM [Concomitant]
     Dosage: 30 MG, PRN
  6. LORCET-HD [Concomitant]
  7. MAGNEVIST [Suspect]
  8. MAGNEVIST [Suspect]
  9. METHADONE HCL [Concomitant]
  10. RISPERDAL [Concomitant]
  11. IBUPROFEN [Concomitant]
  12. GADOLINIUM IN UNSPECIFIED DRUG [Suspect]
     Indication: NUCLEAR MAGNETIC RESONANCE IMAGING
  13. MORPHINE [Concomitant]
  14. VALIUM [Concomitant]
  15. LASIX [Concomitant]
  16. PROZAC [Concomitant]
  17. FOLBEE [Concomitant]
  18. OXYCONTIN [Concomitant]
  19. PERCOCET [Concomitant]
  20. GADOLINIUM IN UNSPECIFIED DRUG [Suspect]
     Dosage: UNK
     Dates: start: 20050101
  21. XANAX [Concomitant]
  22. PREDNISONE [Concomitant]
  23. COMPAZINE [Concomitant]
  24. POTASSIUM [Concomitant]
     Dosage: 20 MEQ, QD
  25. TRAMADOL HCL [Concomitant]
     Dosage: UNK UNK, PRN
  26. RITALIN [Concomitant]
     Dosage: 40 MG, QD

REACTIONS (24)
  - MUSCLE TIGHTNESS [None]
  - SKIN FIBROSIS [None]
  - RASH [None]
  - MUSCULOSKELETAL STIFFNESS [None]
  - MOBILITY DECREASED [None]
  - IMPAIRED HEALING [None]
  - SENSORY LOSS [None]
  - SKIN TIGHTNESS [None]
  - SKIN ULCER [None]
  - DRY SKIN [None]
  - PRURITUS GENERALISED [None]
  - PAIN [None]
  - JOINT RANGE OF MOTION DECREASED [None]
  - GAIT DISTURBANCE [None]
  - OEDEMA [None]
  - PRURITUS [None]
  - DEPRESSION [None]
  - ARTHRALGIA [None]
  - SKIN DISCOLOURATION [None]
  - SCAR [None]
  - NEPHROGENIC SYSTEMIC FIBROSIS [None]
  - ASTHENIA [None]
  - SKIN INDURATION [None]
  - JOINT STIFFNESS [None]
